FAERS Safety Report 5669759-X (Version None)
Quarter: 2008Q1

REPORT INFORMATION
  Report Type: 
  Country: None (occurrence: None)
  Receive Date: 20080313
  Receipt Date: 20080313
  Transmission Date: 20080703
  Serious: Yes (Death)
  Sender: FDA-Public Use
  Company Number: None

PATIENT
  Age: 71 Year
  Sex: Male
  Weight: 101 kg

DRUGS (10)
  1. EPTIFIBATIDE, SCHERING [Suspect]
     Indication: POST PROCEDURAL MYOCARDIAL INFARCTION
     Dosage: 18MG BOLUS, 16MG INFUSION IV
     Route: 042
     Dates: start: 20071126, end: 20071128
  2. HEPARIN [Suspect]
     Indication: ACUTE MYOCARDIAL INFARCTION
     Dosage: 25,000 UNITS/250ML INFUSION IV
     Route: 042
     Dates: start: 20071126, end: 20071128
  3. HEPARIN [Suspect]
     Indication: POST PROCEDURAL MYOCARDIAL INFARCTION
     Dosage: 25,000 UNITS/250ML INFUSION IV
     Route: 042
     Dates: start: 20071126, end: 20071128
  4. LISINOPRIL [Concomitant]
     Indication: ACUTE MYOCARDIAL INFARCTION
  5. SIMVASTATIN [Concomitant]
  6. ASPIRIN [Concomitant]
  7. CLOPIDOGREL [Concomitant]
  8. HEPARIN [Concomitant]
  9. EPTIFIBATIDE [Concomitant]
  10. METOPROLOL TARTRATE [Concomitant]

REACTIONS (11)
  - ABDOMINAL PAIN [None]
  - ACUTE MYOCARDIAL INFARCTION [None]
  - CARDIO-RESPIRATORY ARREST [None]
  - ELECTROMECHANICAL DISSOCIATION [None]
  - HAEMORRHAGE [None]
  - HYPOTENSION [None]
  - ISCHAEMIA [None]
  - NO THERAPEUTIC RESPONSE [None]
  - PAPILLARY MUSCLE DISORDER [None]
  - RETROPERITONEAL HAEMORRHAGE [None]
  - SUBENDOCARDIAL ISCHAEMIA [None]
